FAERS Safety Report 4929141-7 (Version None)
Quarter: 2006Q1

REPORT INFORMATION
  Report Type: 
  Country: None (occurrence: None)
  Receive Date: 20060301
  Receipt Date: 20051031
  Transmission Date: 20060701
  Serious: Yes (Hospitalization, Other)
  Sender: FDA-Public Use
  Company Number: US-MERCK-0511USA00267

PATIENT
  Age: 71 Year
  Sex: Female
  Weight: 98 kg

DRUGS (20)
  1. VIOXX [Suspect]
     Indication: BACK PAIN
     Route: 048
     Dates: start: 20000801, end: 20040401
  2. VIOXX [Suspect]
     Route: 048
     Dates: start: 20000801, end: 20040401
  3. VIOXX [Suspect]
     Route: 048
     Dates: start: 20031007
  4. VIOXX [Suspect]
     Indication: PAIN IN EXTREMITY
     Route: 048
     Dates: start: 20000801, end: 20040401
  5. VIOXX [Suspect]
     Route: 048
     Dates: start: 20000801, end: 20040401
  6. VIOXX [Suspect]
     Route: 048
     Dates: start: 20031007
  7. LANOXIN [Concomitant]
     Route: 065
  8. WARFARIN [Concomitant]
     Route: 065
  9. TRAZODONE HYDROCHLORIDE [Concomitant]
     Route: 065
  10. NEXIUM [Concomitant]
     Route: 065
  11. [THERAPY UNSPECIFIED] [Concomitant]
     Route: 065
  12. PREMARIN [Concomitant]
     Route: 065
  13. AMBIEN [Concomitant]
     Route: 065
  14. SYNTHROID [Concomitant]
     Route: 065
  15. ALTACE [Concomitant]
     Route: 065
  16. ACIPHEX [Concomitant]
     Route: 065
  17. NORVASC [Concomitant]
     Route: 065
     Dates: start: 20021009
  18. COUMADIN [Concomitant]
     Indication: THROMBOSIS
     Route: 065
     Dates: start: 20021009
  19. COUMADIN [Concomitant]
     Indication: PULMONARY EMBOLISM
     Route: 065
     Dates: start: 20021009
  20. ZOCOR [Concomitant]
     Route: 065
     Dates: start: 20030812

REACTIONS (42)
  - ABDOMINAL DISTENSION [None]
  - ANAEMIA [None]
  - ANXIETY DISORDER [None]
  - ASTHMA [None]
  - ATRIAL FIBRILLATION [None]
  - ATROPHIC VULVOVAGINITIS [None]
  - BLOOD CHOLESTEROL INCREASED [None]
  - CALCIUM DEFICIENCY [None]
  - CARDIAC FAILURE CONGESTIVE [None]
  - CEREBROVASCULAR ACCIDENT [None]
  - CHEST PAIN [None]
  - CHEST X-RAY ABNORMAL [None]
  - CHRONIC OBSTRUCTIVE PULMONARY DISEASE [None]
  - CONSTIPATION [None]
  - CONTUSION [None]
  - CORONARY ARTERY DISEASE [None]
  - DEPRESSION [None]
  - DISEASE RECURRENCE [None]
  - DYSPEPSIA [None]
  - DYSPNOEA [None]
  - FATIGUE [None]
  - FLATULENCE [None]
  - GASTROINTESTINAL HAEMORRHAGE [None]
  - GASTROOESOPHAGEAL REFLUX DISEASE [None]
  - GOUT [None]
  - HEADACHE [None]
  - HYPERTENSIVE HEART DISEASE [None]
  - HYPERTONIC BLADDER [None]
  - INCREASED TENDENCY TO BRUISE [None]
  - JOINT SWELLING [None]
  - LUNG DISORDER [None]
  - MAJOR DEPRESSION [None]
  - MIGRAINE [None]
  - NAUSEA [None]
  - NECK PAIN [None]
  - NOCTURIA [None]
  - PULMONARY EMBOLISM [None]
  - RENAL CELL CARCINOMA STAGE UNSPECIFIED [None]
  - RENAL MASS [None]
  - SEASONAL ALLERGY [None]
  - SYNCOPE [None]
  - THROMBOSIS [None]
